FAERS Safety Report 24309509 (Version 1)
Quarter: 2024Q3

REPORT INFORMATION
  Report Type: Report from Study
  Country: KR (occurrence: KR)
  Receive Date: 20240912
  Receipt Date: 20240912
  Transmission Date: 20241017
  Serious: Yes (Other)
  Sender: JOHNSON AND JOHNSON
  Company Number: KR-JNJFOC-20240911227

PATIENT

DRUGS (1)
  1. REMICADE [Suspect]
     Active Substance: INFLIXIMAB
     Indication: Rheumatoid arthritis
     Route: 041

REACTIONS (9)
  - Neoplasm malignant [Unknown]
  - Hepatotoxicity [Unknown]
  - Infusion related reaction [Unknown]
  - Adverse reaction [Unknown]
  - Skin reaction [Unknown]
  - Infection [Unknown]
  - Blood disorder [Unknown]
  - Renal disorder [Unknown]
  - Drug ineffective [Unknown]
